FAERS Safety Report 9548637 (Version 2)
Quarter: 2014Q3

REPORT INFORMATION
  Report Type: Spontaneous
  Country: US (occurrence: US)
  Receive Date: 20130924
  Receipt Date: 20140813
  Transmission Date: 20150326
  Serious: Yes (Hospitalization, Other)
  Sender: FDA-Public Use
  Company Number: US-009507513-1309USA010289

PATIENT
  Age: 24 Year
  Sex: Female
  Weight: 100 kg

DRUGS (1)
  1. NUVARING [Suspect]
     Active Substance: ETHINYL ESTRADIOL\ETONOGESTREL
     Indication: CONTRACEPTION
     Route: 067

REACTIONS (12)
  - Anxiety [Unknown]
  - Dysmenorrhoea [Unknown]
  - Tension headache [Unknown]
  - Nausea [Unknown]
  - Knee operation [Unknown]
  - Asthma exercise induced [Unknown]
  - Pulmonary embolism [Unknown]
  - Knee operation [Unknown]
  - Knee operation [Unknown]
  - Headache [Unknown]
  - Headache [Unknown]
  - Coagulopathy [Unknown]

NARRATIVE: CASE EVENT DATE: 2001
